FAERS Safety Report 25254893 (Version 4)
Quarter: 2025Q3

REPORT INFORMATION
  Report Type: Report from Study
  Country: US (occurrence: US)
  Receive Date: 20250430
  Receipt Date: 20250723
  Transmission Date: 20251021
  Serious: No
  Sender: SUNOVION
  Company Number: US-SUMITOMO PHARMA SWITZERLAND GMBH-2025SPA004188

PATIENT

DRUGS (8)
  1. ORGOVYX [Suspect]
     Active Substance: RELUGOLIX
     Indication: Prostate cancer
     Route: 048
  2. ORGOVYX [Suspect]
     Active Substance: RELUGOLIX
     Dosage: 120 MG, QD
     Route: 048
     Dates: start: 202501
  3. ABIRATERONE [Suspect]
     Active Substance: ABIRATERONE
     Route: 048
  4. PREDNISONE [Suspect]
     Active Substance: PREDNISONE
     Route: 048
  5. COLACE [Concomitant]
     Active Substance: DOCUSATE SODIUM
     Route: 048
  6. Multivitamin mens [Concomitant]
     Route: 048
  7. TRAMADOL [Concomitant]
     Active Substance: TRAMADOL
     Route: 048
  8. MIRTAZAPINE [Concomitant]
     Active Substance: MIRTAZAPINE
     Route: 048

REACTIONS (7)
  - Pain [Unknown]
  - Mood altered [Unknown]
  - Throat irritation [Unknown]
  - Dysphagia [Unknown]
  - Hot flush [Unknown]
  - Depression [Unknown]
  - Fatigue [Unknown]
